FAERS Safety Report 25700366 (Version 1)
Quarter: 2025Q3

REPORT INFORMATION
  Report Type: Spontaneous
  Country: US (occurrence: None)
  Receive Date: 20250818
  Receipt Date: 20250818
  Transmission Date: 20251020
  Serious: Yes (Death)
  Sender: FDA-CTU
  Company Number: None

PATIENT
  Age: 51 Year
  Sex: Male

DRUGS (11)
  1. TACROLIMUS [Suspect]
     Active Substance: TACROLIMUS
     Indication: Proteinuria
     Dosage: FREQUENCY : DAILY;?
     Route: 048
     Dates: start: 20211110
  2. ALBUTEROL AER HFA [Concomitant]
  3. AMLODIPINE TAB 5MG [Concomitant]
  4. ATORVASTATIN TAB 20MG [Concomitant]
  5. AZITHROMYCIN [Concomitant]
     Active Substance: AZITHROMYCIN
  6. CYCLOPHOSPH CAP50MG [Concomitant]
  7. DEPO-MEDROL INJ 80MG/ML [Concomitant]
  8. ENALAPRIL TAB 2.5MG [Concomitant]
  9. FUROSEMIDE [Concomitant]
     Active Substance: FUROSEMIDE
  10. HYDRALAZINE TAB 50MG [Concomitant]
  11. LABETALOL TAB 300MG [Concomitant]

REACTIONS (1)
  - Death [None]

NARRATIVE: CASE EVENT DATE: 20250815
